FAERS Safety Report 13532948 (Version 1)
Quarter: 2017Q2

REPORT INFORMATION
  Report Type: Spontaneous
  Country: SI (occurrence: SI)
  Receive Date: 20170510
  Receipt Date: 20170510
  Transmission Date: 20170830
  Serious: Yes (Life-Threatening, Other)
  Sender: FDA-Public Use
  Company Number: SI-B.I. PHARMACEUTICALS,INC./RIDGEFIELD-2017-BI-025560

PATIENT
  Age: 87 Year
  Sex: Female

DRUGS (1)
  1. PRAXBIND [Suspect]
     Active Substance: IDARUCIZUMAB
     Indication: SHOCK HAEMORRHAGIC
     Route: 065

REACTIONS (3)
  - Hypervolaemia [Unknown]
  - Cardiac failure [Unknown]
  - Acute kidney injury [Recovered/Resolved]
